FAERS Safety Report 18400564 (Version 5)
Quarter: 2023Q1

REPORT INFORMATION
  Report Type: Spontaneous
  Country: US (occurrence: US)
  Receive Date: 20201019
  Receipt Date: 20230309
  Transmission Date: 20230418
  Serious: No
  Sender: FDA-Public Use
  Company Number: US-PFIZER INC-2020401393

PATIENT
  Age: 52 Year
  Sex: Female

DRUGS (1)
  1. XELJANZ XR [Suspect]
     Active Substance: TOFACITINIB CITRATE
     Indication: Rheumatoid arthritis
     Dosage: 11 MG, DAILY
     Route: 048
     Dates: start: 202006

REACTIONS (16)
  - Pain [Unknown]
  - Fatigue [Unknown]
  - Dyspnoea exertional [Unknown]
  - Gene mutation [Unknown]
  - Feeling abnormal [Unknown]
  - Asthenia [Unknown]
  - Condition aggravated [Unknown]
  - Menopause [Unknown]
  - Anxiety [Unknown]
  - Stress at work [Unknown]
  - Exercise tolerance decreased [Unknown]
  - Attention deficit hyperactivity disorder [Unknown]
  - Memory impairment [Unknown]
  - Factor II mutation [Unknown]
  - Dysgraphia [Unknown]
  - Back disorder [Unknown]
